FAERS Safety Report 14065097 (Version 3)
Quarter: 2018Q1

REPORT INFORMATION
  Report Type: Spontaneous
  Country: US (occurrence: US)
  Receive Date: 20171009
  Receipt Date: 20180209
  Transmission Date: 20180508
  Serious: No
  Sender: FDA-Public Use
  Company Number: US-PFIZER INC-2017432541

PATIENT
  Age: 53 Year
  Sex: Female

DRUGS (2)
  1. LYRICA [Suspect]
     Active Substance: PREGABALIN
     Indication: ARTHRALGIA
     Dosage: 200 MG, 2X/DAY
     Route: 048
     Dates: start: 201211
  2. LYRICA [Suspect]
     Active Substance: PREGABALIN
     Indication: ARTHRODESIS
     Dosage: 200 MG, 2X/DAY
     Route: 048
     Dates: start: 20111210

REACTIONS (2)
  - Product use in unapproved indication [Unknown]
  - Neuroma [Unknown]

NARRATIVE: CASE EVENT DATE: 2011
